FAERS Safety Report 14297513 (Version 5)
Quarter: 2018Q1

REPORT INFORMATION
  Report Type: Spontaneous
  Country: US (occurrence: US)
  Receive Date: 20171218
  Receipt Date: 20180313
  Transmission Date: 20180509
  Serious: No
  Sender: FDA-Public Use
  Company Number: US-PFIZER INC-2017530950

PATIENT
  Age: 6 Year
  Sex: Male
  Weight: 21.5 kg

DRUGS (4)
  1. GENOTROPIN [Suspect]
     Active Substance: SOMATROPIN
     Dosage: 1 MG, ONCE DAILY (ONCE AT NIGHT BEFORE GOING TO BED)
     Route: 058
     Dates: start: 20161224
  2. CETRIZEN [Concomitant]
     Indication: HYPERSENSITIVITY
     Dosage: UNK
  3. GENOTROPIN [Suspect]
     Active Substance: SOMATROPIN
     Dosage: 1.0 MG, DAILY
     Route: 058
     Dates: start: 20161103
  4. GENOTROPIN [Suspect]
     Active Substance: SOMATROPIN
     Dosage: 1 MG, ONCE DAILY (ONCE AT NIGHT BEFORE GOING TO BED)
     Dates: start: 20170913

REACTIONS (2)
  - Injection site extravasation [Unknown]
  - Device leakage [Unknown]
